FAERS Safety Report 9908506 (Version 1)
Quarter: 2014Q1

REPORT INFORMATION
  Report Type: Spontaneous
  Country: US (occurrence: None)
  Receive Date: 20140214
  Receipt Date: 20140214
  Transmission Date: 20141002
  Serious: Yes (Hospitalization)
  Sender: FDA-Public Use
  Company Number: None

PATIENT
  Age: 88 Year
  Sex: Male
  Weight: 56.25 kg

DRUGS (15)
  1. SEPTRA DS [Suspect]
     Indication: BLADDER CATHETER REMOVAL
     Dosage: RECENT
     Route: 048
  2. QUINAPRIL [Suspect]
     Indication: HYPERTENSION
     Dosage: CHRONIC WITH DECREASED
     Route: 048
  3. BUMEX [Suspect]
     Indication: HYPERTENSION
     Dosage: CHRONIC W/DECREASE
  4. COREG [Concomitant]
  5. PROSCAR [Concomitant]
  6. SIMVASTATIN [Concomitant]
  7. LUTEIN [Concomitant]
  8. MVI [Concomitant]
  9. CA+VITD [Concomitant]
  10. OMEPRAZOLE [Concomitant]
  11. FLOMAX [Concomitant]
  12. MAG OX [Concomitant]
  13. ASA/APAP [Concomitant]
  14. FERROUS SULFATE [Concomitant]
  15. FISH OIL [Concomitant]

REACTIONS (5)
  - Syncope [None]
  - Renal failure acute [None]
  - Decreased appetite [None]
  - Fluid intake reduced [None]
  - Fluid overload [None]
